FAERS Safety Report 8494124-X (Version None)
Quarter: 2012Q3

REPORT INFORMATION
  Report Type: 
  Country: None (occurrence: None)
  Receive Date: 20120702
  Receipt Date: 20120702
  Transmission Date: 20120928
  Serious: Yes (Other)
  Sender: FDA-Public Use
  Company Number: None

PATIENT
  Sex: Male
  Weight: 58.0604 kg

DRUGS (1)
  1. ABILIFY [Suspect]
     Indication: BIPOLAR I DISORDER
     Dosage: 5, 10 MG DAILY
     Dates: start: 20120515, end: 20120622

REACTIONS (1)
  - RASH PRURITIC [None]
